FAERS Safety Report 25603473 (Version 1)
Quarter: 2025Q3

REPORT INFORMATION
  Report Type: Report from Study
  Country: GB (occurrence: GB)
  Receive Date: 20250724
  Receipt Date: 20250724
  Transmission Date: 20251020
  Serious: Yes (Other)
  Sender: ABBVIE
  Company Number: GB-ABBVIE-6382499

PATIENT
  Age: 40 Year
  Sex: Female

DRUGS (5)
  1. SKYRIZI [Suspect]
     Active Substance: RISANKIZUMAB-RZAA
     Indication: Psoriasis
     Route: 058
     Dates: start: 20200109, end: 20220215
  2. SKYRIZI [Suspect]
     Active Substance: RISANKIZUMAB-RZAA
     Route: 058
     Dates: start: 20221015, end: 20250314
  3. Beclometasone/formoterol cipla [Concomitant]
     Indication: Product used for unknown indication
     Dates: start: 20210301
  4. TIOTROPIUM [Concomitant]
     Active Substance: TIOTROPIUM
     Indication: Product used for unknown indication
     Dates: start: 20220801
  5. DICLOFENAC [Concomitant]
     Active Substance: DICLOFENAC
     Indication: Product used for unknown indication
     Dates: start: 20241008

REACTIONS (3)
  - Abortion spontaneous [Unknown]
  - Intrapartum haemorrhage [Recovered/Resolved]
  - Maternal exposure during pregnancy [Unknown]

NARRATIVE: CASE EVENT DATE: 20241120
